FAERS Safety Report 21758606 (Version 1)
Quarter: 2022Q4

REPORT INFORMATION
  Report Type: Report from Study
  Country: US (occurrence: None)
  Receive Date: 20221221
  Receipt Date: 20221221
  Transmission Date: 20230113
  Serious: Yes (Death, Hospitalization)
  Sender: FDA-Public Use
  Company Number: US-ROCHE-3112638

PATIENT
  Age: 78 Year
  Sex: Male
  Weight: 74.8 kg

DRUGS (3)
  1. ATEZOLIZUMAB [Suspect]
     Active Substance: ATEZOLIZUMAB
     Indication: Non-small cell lung cancer metastatic
     Route: 065
  2. BEVACIZUMAB [Suspect]
     Active Substance: BEVACIZUMAB
     Indication: Non-small cell lung cancer metastatic
     Dosage: ON 28/MAR/2022, LAST DOSE WAS ADMINISTERED
     Route: 065
  3. OSIMERTINIB [Suspect]
     Active Substance: OSIMERTINIB
     Indication: Non-small cell lung cancer metastatic
     Dosage: ON 26/APR/2022, LAST DOSE WAS ADMINISTERED
     Route: 065

REACTIONS (1)
  - Encephalopathy [Fatal]

NARRATIVE: CASE EVENT DATE: 20220418
